FAERS Safety Report 19870375 (Version 2)
Quarter: 2021Q3

REPORT INFORMATION
  Report Type: Spontaneous
  Country: US (occurrence: US)
  Receive Date: 20210923
  Receipt Date: 20210930
  Transmission Date: 20211014
  Serious: Yes (Hospitalization)
  Sender: FDA-Public Use
  Company Number: US-UNITED THERAPEUTICS-UNT-2021-018395

PATIENT
  Age: 68 Year
  Sex: Female

DRUGS (2)
  1. REMODULIN [Suspect]
     Active Substance: TREPROSTINIL
     Indication: PULMONARY ARTERIAL HYPERTENSION
     Dosage: UNK, CONTINUING
     Route: 058
     Dates: start: 20120411
  2. REMODULIN [Suspect]
     Active Substance: TREPROSTINIL
     Dosage: 0.0981 ?G/KG, CONTINUING
     Route: 058
     Dates: end: 202109

REACTIONS (7)
  - Vomiting [Unknown]
  - Infusion site reaction [Unknown]
  - Infusion site scar [Unknown]
  - Nausea [Unknown]
  - Infusion site infection [Unknown]
  - Device maintenance issue [Unknown]
  - Headache [Unknown]

NARRATIVE: CASE EVENT DATE: 20210914
